FAERS Safety Report 23320363 (Version 1)
Quarter: 2023Q4

REPORT INFORMATION
  Report Type: Spontaneous
  Country: US (occurrence: US)
  Receive Date: 20231220
  Receipt Date: 20231220
  Transmission Date: 20240110
  Serious: No
  Sender: FDA-Public Use
  Company Number: US-PROVENTION BIO, INC.-US-PRAG-23-00101

PATIENT
  Age: 13 Year
  Sex: Female

DRUGS (2)
  1. TZIELD [Suspect]
     Active Substance: TEPLIZUMAB-MZWV
     Indication: Diabetes prophylaxis
     Dosage: 85 MICROGRAMS
     Route: 042
     Dates: start: 20231016, end: 20231016
  2. TZIELD [Suspect]
     Active Substance: TEPLIZUMAB-MZWV
     Dosage: 1360 MCG
     Route: 042

REACTIONS (9)
  - Chest discomfort [Recovered/Resolved]
  - Pain [Unknown]
  - Rash pruritic [Recovered/Resolved]
  - Headache [Not Recovered/Not Resolved]
  - Fatigue [Not Recovered/Not Resolved]
  - Cytokine release syndrome [Unknown]
  - Lethargy [Unknown]
  - Pallor [Unknown]
  - Decreased appetite [Unknown]

NARRATIVE: CASE EVENT DATE: 20231016
